FAERS Safety Report 5731984-7 (Version None)
Quarter: 2008Q2

REPORT INFORMATION
  Report Type: 
  Country: None (occurrence: None)
  Receive Date: 20080508
  Receipt Date: 20080430
  Transmission Date: 20081010
  Serious: Yes (Hospitalization, Other)
  Sender: FDA-Public Use
  Company Number: GB-JNJFOC-20080403180

PATIENT
  Sex: Male

DRUGS (2)
  1. CONCERTA [Suspect]
     Route: 048
  2. CONCERTA [Suspect]
     Indication: ATTENTION DEFICIT/HYPERACTIVITY DISORDER
     Dosage: THE PATIENT TOOK AN OVERDOSE 8-10 TABLETS OF CONCERTA XL
     Route: 048

REACTIONS (3)
  - OVERDOSE [None]
  - SUICIDAL IDEATION [None]
  - SUICIDE ATTEMPT [None]
